FAERS Safety Report 12119496 (Version 1)
Quarter: 2016Q1

REPORT INFORMATION
  Report Type: Spontaneous
  Country: US (occurrence: None)
  Receive Date: 20160225
  Receipt Date: 20160225
  Transmission Date: 20160526
  Serious: No
  Sender: FDA-Public Use
  Company Number: None

PATIENT
  Age: 62 Year
  Sex: Male

DRUGS (3)
  1. DIPHENHYDRAMINE. [Concomitant]
     Active Substance: DIPHENHYDRAMINE
  2. ERBITUX [Suspect]
     Active Substance: CETUXIMAB
     Indication: OROPHARYNGEAL CANCER
     Dosage: IVPB -- INTRAVENOUS
     Route: 042
  3. CETUXIMAB [Concomitant]
     Active Substance: CETUXIMAB

REACTIONS (1)
  - Chills [None]

NARRATIVE: CASE EVENT DATE: 20160224
